FAERS Safety Report 5636748-0 (Version None)
Quarter: 2008Q1

REPORT INFORMATION
  Report Type: 
  Country: None (occurrence: None)
  Receive Date: 20080225
  Receipt Date: 20080214
  Transmission Date: 20080703
  Serious: Yes (Hospitalization, Other)
  Sender: FDA-Public Use
  Company Number: NZ-NOVOPROD-272200

PATIENT

DRUGS (1)
  1. PENMIX 30 PENFILL [Suspect]

REACTIONS (2)
  - BLOOD GLUCOSE DECREASED [None]
  - NEOPLASM MALIGNANT [None]
